FAERS Safety Report 7340966 (Version 2)
Quarter: 2014Q4

REPORT INFORMATION
  Report Type: Report from Study
  Country: DE (occurrence: DE)
  Receive Date: 20100401
  Receipt Date: 20141031
  Transmission Date: 20150529
  Serious: Yes (Death, Hospitalization, Other)
  Sender: FDA-Public Use
  Company Number: DE-ROCHE-694306

PATIENT
  Age: 72 Year
  Sex: Male
  Weight: 83 kg

DRUGS (11)
  1. INTERFERON ALFA NOS [Suspect]
     Active Substance: INTERFERON ALFA-2A OR INTERFERON ALFA-2B
     Route: 058
     Dates: start: 20100930, end: 20101209
  2. BEVACIZUMAB [Suspect]
     Active Substance: BEVACIZUMAB
     Indication: RENAL CANCER METASTATIC
     Route: 042
     Dates: start: 20090304, end: 200912
  3. SUNITINIB [Concomitant]
     Active Substance: SUNITINIB
     Indication: METASTATIC RENAL CELL CARCINOMA
     Dosage: 2ND LINE THERAPY
     Route: 065
     Dates: start: 20100604, end: 20100907
  4. INTERFERON ALFA NOS [Suspect]
     Active Substance: INTERFERON ALFA-2A OR INTERFERON ALFA-2B
     Dosage: FOR ONE CYCLE.
     Route: 058
     Dates: start: 20090609, end: 200910
  5. INTERFERON ALFA NOS [Suspect]
     Active Substance: INTERFERON ALFA-2A OR INTERFERON ALFA-2B
     Route: 058
     Dates: start: 20090331, end: 200905
  6. BEVACIZUMAB [Suspect]
     Active Substance: BEVACIZUMAB
     Route: 042
     Dates: start: 20091215, end: 20100126
  7. BEVACIZUMAB [Suspect]
     Active Substance: BEVACIZUMAB
     Dosage: 3RD LINE THERAPY
     Route: 042
     Dates: start: 20100930, end: 20101209
  8. INTERFERON ALFA NOS [Suspect]
     Active Substance: INTERFERON ALFA-2A OR INTERFERON ALFA-2B
     Route: 058
  9. INTERFERON ALFA NOS [Suspect]
     Active Substance: INTERFERON ALFA-2A OR INTERFERON ALFA-2B
     Dosage: FOR ONE CYCLE.
     Route: 058
     Dates: start: 20091027, end: 201002
  10. INTERFERON ALFA NOS [Suspect]
     Active Substance: INTERFERON ALFA-2A OR INTERFERON ALFA-2B
     Indication: RENAL CANCER METASTATIC
     Route: 058
     Dates: start: 20090304, end: 20090316
  11. INTERFERON ALFA NOS [Suspect]
     Active Substance: INTERFERON ALFA-2A OR INTERFERON ALFA-2B
     Dosage: FOR ONE CYCLE.
     Route: 058
     Dates: start: 20090526, end: 200906

REACTIONS (8)
  - Haemoglobin decreased [Recovered/Resolved]
  - Malignant neoplasm progression [Fatal]
  - Melaena [Recovered/Resolved]
  - Gastrointestinal haemorrhage [Unknown]
  - Angiodysplasia [Unknown]
  - Impaired healing [Not Recovered/Not Resolved]
  - Epistaxis [Not Recovered/Not Resolved]
  - White blood cell count decreased [Not Recovered/Not Resolved]

NARRATIVE: CASE EVENT DATE: 20100210
